FAERS Safety Report 15859388 (Version 1)
Quarter: 2019Q1

REPORT INFORMATION
  Report Type: Spontaneous
  Country: US (occurrence: US)
  Receive Date: 20190123
  Receipt Date: 20190123
  Transmission Date: 20190417
  Serious: No
  Sender: FDA-Public Use
  Company Number: US-SA-2019SA016946

PATIENT

DRUGS (2)
  1. PRALUENT [Suspect]
     Active Substance: ALIROCUMAB
  2. EVOLOCUMAB [Concomitant]
     Active Substance: EVOLOCUMAB

REACTIONS (2)
  - Sleep apnoea syndrome [Unknown]
  - Nightmare [Unknown]
